FAERS Safety Report 10973705 (Version 2)
Quarter: 2015Q2

REPORT INFORMATION
  Report Type: Spontaneous
  Country: IT (occurrence: IT)
  Receive Date: 20150401
  Receipt Date: 20150430
  Transmission Date: 20150821
  Serious: Yes (Hospitalization)
  Sender: FDA-Public Use
  Company Number: IT-TEVA-550845ACC

PATIENT
  Age: 83 Year
  Sex: Female

DRUGS (4)
  1. OLANZAPINA TEVA - TEVA PHARMA B.V. [Suspect]
     Active Substance: OLANZAPINE
     Indication: DELUSION
     Dosage: 15 MILLIGRAM DAILY; 15 MG DAILY
     Route: 048
     Dates: start: 20140201, end: 20140801
  2. LASIX [Concomitant]
     Active Substance: FUROSEMIDE
     Indication: PRODUCT USED FOR UNKNOWN INDICATION
     Dosage: 2 DF
  3. OLANZAPINA TEVA - TEVA PHARMA B.V. [Suspect]
     Active Substance: OLANZAPINE
     Indication: HALLUCINATION
  4. LANSOPRAZOLE. [Concomitant]
     Active Substance: LANSOPRAZOLE
     Indication: PRODUCT USED FOR UNKNOWN INDICATION

REACTIONS (1)
  - Psychotic disorder [Unknown]

NARRATIVE: CASE EVENT DATE: 20140801
